FAERS Safety Report 6291864-8 (Version None)
Quarter: 2009Q3

REPORT INFORMATION
  Report Type: 
  Country: None (occurrence: None)
  Receive Date: 20090730
  Receipt Date: 20090720
  Transmission Date: 20100115
  Serious: Yes (Other)
  Sender: FDA-Public Use
  Company Number: IT-GENENTECH-287563

PATIENT
  Age: 68 Year
  Sex: Female

DRUGS (10)
  1. MABTHERA [Suspect]
     Indication: B-CELL LYMPHOMA STAGE III
     Route: 065
  2. CYTOXAN [Suspect]
     Indication: B-CELL LYMPHOMA STAGE III
     Dosage: UNK
     Route: 065
     Dates: start: 20040901
  3. DOXORUBICIN HCL [Suspect]
     Indication: B-CELL LYMPHOMA STAGE III
     Route: 065
  4. ONCOVIN [Suspect]
     Indication: B-CELL LYMPHOMA STAGE III
     Route: 065
  5. PREDNISONE TAB [Suspect]
     Indication: B-CELL LYMPHOMA STAGE III
     Route: 048
  6. DEXAMETHASONE [Suspect]
     Indication: B-CELL LYMPHOMA STAGE III
     Dosage: UNK
     Route: 065
     Dates: start: 20040101
  7. CYTARABINE [Suspect]
     Indication: B-CELL LYMPHOMA STAGE III
     Dosage: UNK
     Route: 065
     Dates: start: 20040101
  8. CISPLATIN [Suspect]
     Indication: B-CELL LYMPHOMA STAGE III
     Dosage: UNK
     Route: 065
     Dates: start: 20040101
  9. VINORELBINE [Suspect]
     Indication: B-CELL LYMPHOMA STAGE III
     Dosage: UNK
     Route: 065
     Dates: start: 20040501
  10. CYCLOSPORINE [Suspect]
     Indication: B-CELL LYMPHOMA STAGE III
     Route: 065

REACTIONS (3)
  - GLOMERULONEPHRITIS MEMBRANOUS [None]
  - HYPERTENSIVE CRISIS [None]
  - RENAL IMPAIRMENT [None]
